FAERS Safety Report 12497881 (Version 4)
Quarter: 2016Q3

REPORT INFORMATION
  Report Type: Other
  Country: GB (occurrence: GB)
  Receive Date: 20160625
  Receipt Date: 20160915
  Transmission Date: 20161109
  Serious: Yes (Other)
  Sender: FDA-Public Use
  Company Number: GB-APOTEX-2016AP009430

PATIENT
  Age: 35 Year
  Sex: Male

DRUGS (23)
  1. PAROXETINE. [Suspect]
     Active Substance: PAROXETINE
     Dosage: 10 MG, Q.O.D.
     Route: 065
  2. PAROXETINE. [Suspect]
     Active Substance: PAROXETINE
     Dosage: 20 MG, Q.O.D.
     Route: 065
  3. PAROXETINE. [Suspect]
     Active Substance: PAROXETINE
     Dosage: 4/5 MG, ALTERNATE DAYS
     Route: 065
  4. PAROXETINE. [Suspect]
     Active Substance: PAROXETINE
     Dosage: 40 MG, DAILY
     Route: 065
  5. PAXIL [Suspect]
     Active Substance: PAROXETINE HYDROCHLORIDE
     Dosage: UNK
     Route: 065
  6. PROZAC [Concomitant]
     Active Substance: FLUOXETINE HYDROCHLORIDE
     Indication: PRODUCT USED FOR UNKNOWN INDICATION
     Route: 065
  7. PAROXETINE. [Suspect]
     Active Substance: PAROXETINE
     Dosage: 5 MG, UNK
     Route: 065
  8. PAROXETINE. [Suspect]
     Active Substance: PAROXETINE
     Dosage: UNK, QD
     Route: 048
  9. PAROXETINE. [Suspect]
     Active Substance: PAROXETINE
     Dosage: 15 MG, DAILY
     Route: 065
  10. REBOXETINE [Concomitant]
     Active Substance: REBOXETINE
     Indication: PRODUCT USED FOR UNKNOWN INDICATION
     Dosage: 4 MG, Q.AM
     Route: 065
     Dates: start: 200702
  11. REBOXETINE [Concomitant]
     Active Substance: REBOXETINE
     Dosage: 4 MG, BID
     Route: 065
  12. PAXIL [Suspect]
     Active Substance: PAROXETINE HYDROCHLORIDE
     Indication: DEPRESSION
     Dosage: UNK
     Route: 065
     Dates: start: 20070118
  13. PAXIL [Suspect]
     Active Substance: PAROXETINE HYDROCHLORIDE
     Dosage: 4ML UNK
     Route: 065
  14. PAROXETINE. [Suspect]
     Active Substance: PAROXETINE
     Dosage: 10 MG, BID
     Route: 048
     Dates: start: 20021031, end: 20100817
  15. PAROXETINE. [Suspect]
     Active Substance: PAROXETINE
     Dosage: 20 MG, BID
     Route: 048
     Dates: start: 20120229, end: 20130117
  16. PAROXETINE. [Suspect]
     Active Substance: PAROXETINE
     Indication: DEPRESSION
     Dosage: UNK
     Route: 048
     Dates: start: 20011025, end: 20151009
  17. PAROXETINE. [Suspect]
     Active Substance: PAROXETINE
     Indication: ANXIETY
     Dosage: 30 MG, QD
     Route: 048
     Dates: start: 20011218, end: 20160426
  18. PAROXETINE. [Suspect]
     Active Substance: PAROXETINE
     Dosage: 4 MG, DAILY
     Route: 065
  19. PAXIL [Suspect]
     Active Substance: PAROXETINE HYDROCHLORIDE
     Indication: DEPRESSION
     Dosage: 4 ML
     Route: 048
  20. PAROXETINE HYDROCHLORIDE. [Suspect]
     Active Substance: PAROXETINE HYDROCHLORIDE
     Indication: DEPRESSION
     Dosage: UNK, 1D
     Route: 065
  21. PAROXETINE. [Suspect]
     Active Substance: PAROXETINE
     Indication: DEPRESSION
     Dosage: 4 ML, BID
     Route: 048
     Dates: start: 20070116, end: 20070202
  22. PAROXETINE. [Suspect]
     Active Substance: PAROXETINE
     Dosage: 2 ML, UNK
     Route: 065
  23. SEROXAT [Suspect]
     Active Substance: PAROXETINE HYDROCHLORIDE
     Indication: DEPRESSION
     Dosage: UNK
     Route: 065
     Dates: start: 20070118

REACTIONS (29)
  - Drug withdrawal syndrome [Unknown]
  - Paraesthesia [Unknown]
  - Irritability [Unknown]
  - Depression [Unknown]
  - Depressed mood [Unknown]
  - Negativism [Unknown]
  - Loss of libido [Unknown]
  - Sleep disorder [Unknown]
  - Suicidal ideation [Unknown]
  - Feeling abnormal [Unknown]
  - Agitation [Unknown]
  - Diarrhoea [Unknown]
  - Influenza like illness [Unknown]
  - Disturbance in attention [Unknown]
  - Tearfulness [Unknown]
  - Panic attack [Unknown]
  - Hyposmia [Unknown]
  - Anxiety [Unknown]
  - Nightmare [Unknown]
  - Dizziness [Unknown]
  - Aggression [Unknown]
  - Mood altered [Unknown]
  - Memory impairment [Unknown]
  - Lethargy [Unknown]
  - Headache [Unknown]
  - Flat affect [Unknown]
  - Fatigue [Unknown]
  - Hypogeusia [Unknown]
  - Restlessness [Unknown]

NARRATIVE: CASE EVENT DATE: 20021031
